FAERS Safety Report 19501909 (Version 1)
Quarter: 2021Q3

REPORT INFORMATION
  Report Type: Spontaneous
  Country: BR (occurrence: BR)
  Receive Date: 20210707
  Receipt Date: 20210707
  Transmission Date: 20211014
  Serious: Yes (Hospitalization, Other)
  Sender: FDA-Public Use
  Company Number: BR-ABBVIE-21P-020-3978823-00

PATIENT
  Sex: Male
  Weight: 82 kg

DRUGS (13)
  1. SOMALGIN CARDIO [Suspect]
     Active Substance: ASPIRIN\DIHYDROXYALUMINUM AMINOACETATE ANHYDROUS\MAGNESIUM CARBONATE
     Indication: ANTICOAGULANT THERAPY
     Route: 048
  2. ATENOLOL. [Suspect]
     Active Substance: ATENOLOL
     Indication: HYPERTENSION
     Route: 048
  3. Q10 [Suspect]
     Active Substance: DIETARY SUPPLEMENT\UBIDECARENONE
     Indication: PRODUCT USED FOR UNKNOWN INDICATION
     Dosage: DAILY DOSE 2 DOSAGE FORMS
     Route: 060
  4. PROLOPA [Interacting]
     Active Substance: BENSERAZIDE\LEVODOPA
     Indication: PARKINSONISM
     Dosage: 1 TABLET AND HALF AT TIME, TAKES 4 TIMES A DAY,
     Route: 048
     Dates: start: 2019
  5. AMOXICILLIN. [Interacting]
     Active Substance: AMOXICILLIN
     Indication: ANTIBIOTIC THERAPY
     Dosage: BUT HAD ALREADY USED BEFORE MANY TIMES
     Route: 065
  6. ESOMEPRAZOLE. [Suspect]
     Active Substance: ESOMEPRAZOLE MAGNESIUM
     Indication: DYSPEPSIA
  7. VITAMIN D [Concomitant]
     Active Substance: VITAMIN D NOS
     Indication: PRODUCT USED FOR UNKNOWN INDICATION
     Dosage: DAILY DOSE 5 DROP, STOPPED IT WAS INCLUDED IN VITAMIN COMPLEX
     Route: 048
  8. SYNTHROID [Suspect]
     Active Substance: LEVOTHYROXINE SODIUM
     Indication: THYROIDECTOMY
     Dosage: DAILY DOSE 150 MICROGRAM (1 TABLET)
     Route: 048
     Dates: start: 2012
  9. ZOLOFT [Interacting]
     Active Substance: SERTRALINE HYDROCHLORIDE
     Indication: DEPRESSION
     Dosage: DAILY DOSE 100 MILLIGRAM, AT BREAKFAST (2 TABLET)
     Route: 048
     Dates: start: 2019
  10. DIOVAN HCT [Suspect]
     Active Substance: HYDROCHLOROTHIAZIDE\VALSARTAN
     Indication: HYPERTENSION
     Dosage: DAILY DOSE 1 TABLET, SINCE HAD A SURGERY IN THE HEART
     Route: 048
  11. ESOMEPRAZOLE. [Suspect]
     Active Substance: ESOMEPRAZOLE MAGNESIUM
     Indication: ABDOMINAL PAIN UPPER
     Dosage: 1 TABLET IN FASTING, DOES NOT TAKE ALWAYS, HE TAKES FOR A PERIOD IMPROVES AND STOPS
     Route: 048
  12. ATENOLOL. [Suspect]
     Active Substance: ATENOLOL
     Indication: CARDIAC DISORDER
  13. VITAMIN C [Suspect]
     Active Substance: ASCORBIC ACID
     Indication: PRODUCT USED FOR UNKNOWN INDICATION
     Route: 048

REACTIONS (10)
  - Illness [Unknown]
  - Parkinsonism [Unknown]
  - Drug interaction [Unknown]
  - Cerebrovascular accident [Unknown]
  - Neck surgery [Unknown]
  - Inappropriate schedule of product administration [Unknown]
  - Metastases to neck [Unknown]
  - Depression [Unknown]
  - General physical health deterioration [Unknown]
  - Blood count abnormal [Unknown]

NARRATIVE: CASE EVENT DATE: 2013
